FAERS Safety Report 9199455 (Version 2)
Quarter: 2013Q2

REPORT INFORMATION
  Report Type: Report from Study
  Country: JP (occurrence: JP)
  Receive Date: 20130329
  Receipt Date: 20130429
  Transmission Date: 20140414
  Serious: Yes (Hospitalization)
  Sender: FDA-Public Use
  Company Number: JP-SANOFI-AVENTIS-2013SA030760

PATIENT
  Age: 71 Year
  Sex: Male
  Weight: 78 kg

DRUGS (19)
  1. INSULIN GLARGINE [Suspect]
     Indication: TYPE 2 DIABETES MELLITUS
     Dosage: DOSE:4 UNIT(S)
     Route: 058
     Dates: start: 20121006, end: 20121006
  2. INSULIN GLARGINE [Suspect]
     Indication: TYPE 2 DIABETES MELLITUS
     Dosage: DOSE:7 UNIT(S)
     Route: 058
     Dates: start: 20120811, end: 20120811
  3. INSULIN GLARGINE [Suspect]
     Indication: TYPE 2 DIABETES MELLITUS
     Dosage: DOSE:10 UNIT(S)
     Route: 058
     Dates: start: 20120812, end: 20120812
  4. INSULIN GLARGINE [Suspect]
     Indication: TYPE 2 DIABETES MELLITUS
     Dosage: DOSE:14 UNIT(S)
     Route: 058
     Dates: start: 20120813, end: 20120913
  5. INSULIN GLARGINE [Suspect]
     Indication: TYPE 2 DIABETES MELLITUS
     Dosage: DOSE:16 UNIT(S)
     Route: 058
     Dates: start: 20120914, end: 20121220
  6. SOLOSTAR [Suspect]
     Indication: DEVICE THERAPY
     Dates: start: 20120810, end: 20120810
  7. SOLOSTAR [Suspect]
     Indication: DEVICE THERAPY
     Dates: start: 20120811, end: 20120811
  8. SOLOSTAR [Suspect]
     Indication: DEVICE THERAPY
     Dates: start: 20120812, end: 20120812
  9. SOLOSTAR [Suspect]
     Indication: DEVICE THERAPY
     Dates: start: 20120813, end: 20120913
  10. SOLOSTAR [Suspect]
     Indication: DEVICE THERAPY
     Dates: start: 20120914, end: 20121220
  11. BASEN [Concomitant]
     Indication: TYPE 2 DIABETES MELLITUS
     Route: 048
     Dates: start: 20120810
  12. JANUVIA [Concomitant]
     Indication: TYPE 2 DIABETES MELLITUS
     Route: 048
     Dates: start: 20120810, end: 20130314
  13. AMARYL [Concomitant]
     Indication: TYPE 2 DIABETES MELLITUS
     Route: 048
  14. OLMETEC [Concomitant]
     Route: 048
     Dates: end: 20121007
  15. ZYLORIC [Concomitant]
     Route: 048
  16. SELBEX [Concomitant]
     Indication: PROPHYLAXIS
     Route: 048
     Dates: end: 20121007
  17. DIART [Concomitant]
     Route: 048
  18. BEPRICOR [Concomitant]
     Route: 048
  19. WARFARIN [Concomitant]
     Indication: PROPHYLAXIS
     Route: 048

REACTIONS (1)
  - Angina unstable [Recovered/Resolved]
